FAERS Safety Report 5358239-7 (Version None)
Quarter: 2007Q2

REPORT INFORMATION
  Report Type: 
  Country: None (occurrence: None)
  Receive Date: 20070530
  Receipt Date: 20061030
  Transmission Date: 20071010
  Serious: Yes (Other)
  Sender: FDA-Public Use
  Company Number: US200603003555

PATIENT
  Age: 46 Year
  Sex: Male
  Weight: 104.3 kg

DRUGS (5)
  1. ZYPREXA [Suspect]
     Dosage: 7.5 MG, ORAL
     Route: 048
     Dates: start: 19950201, end: 19971001
  2. QUETIAPINE [Concomitant]
  3. DIVALPROEX SODIUM [Concomitant]
  4. BUPROPION HCL [Concomitant]
  5. FLUOXETINE [Concomitant]

REACTIONS (2)
  - HYPERGLYCAEMIA [None]
  - HYPERGLYCAEMIC HYPEROSMOLAR NONKETOTIC SYNDROME [None]
